FAERS Safety Report 14998577 (Version 1)
Quarter: 2018Q3

REPORT INFORMATION
  Report Type: Spontaneous
  Country: None (occurrence: AU)
  Receive Date: 20180612
  Receipt Date: 20180612
  Transmission Date: 20181010
  Serious: No
  Sender: FDA-Public Use
  Company Number: AU-LUPIN PHARMACEUTICALS INC.-2017-04574

PATIENT
  Age: 62 Year
  Sex: Female

DRUGS (1)
  1. IRBESARTAN GH 300 MG TABLET [Suspect]
     Active Substance: IRBESARTAN
     Indication: HYPERTENSION
     Dosage: UNKNOWN
     Route: 065

REACTIONS (6)
  - Malaise [Recovered/Resolved]
  - Drug ineffective [Unknown]
  - Hypersensitivity [Recovered/Resolved]
  - Blood pressure abnormal [Recovered/Resolved]
  - Blood pressure increased [None]
  - Product substitution issue [None]
